FAERS Safety Report 25649257 (Version 1)
Quarter: 2025Q3

REPORT INFORMATION
  Report Type: Spontaneous
  Country: CN (occurrence: CN)
  Receive Date: 20250806
  Receipt Date: 20250806
  Transmission Date: 20251021
  Serious: Yes (Disabling)
  Sender: ROCHE
  Company Number: CN-ROCHE-10000353913

PATIENT
  Age: 49 Year
  Sex: Female

DRUGS (5)
  1. TRASTUZUMAB [Suspect]
     Active Substance: TRASTUZUMAB
     Indication: Breast cancer
     Route: 058
     Dates: start: 20250709, end: 20250709
  2. DOCETAXEL [Suspect]
     Active Substance: DOCETAXEL
     Indication: Breast cancer
     Route: 042
     Dates: start: 20250709, end: 20250709
  3. SODIUM CHLORIDE [Concomitant]
     Active Substance: SODIUM CHLORIDE
     Indication: Breast cancer
     Route: 042
     Dates: start: 20250709, end: 20250709
  4. Human Granulocyte Stimulating Factor [Concomitant]
     Route: 058
  5. LEUCOGEN [Concomitant]
     Active Substance: LEUCOGEN
     Route: 048

REACTIONS (1)
  - Myelosuppression [Recovering/Resolving]

NARRATIVE: CASE EVENT DATE: 20250721
